FAERS Safety Report 4922401-5 (Version None)
Quarter: 2006Q1

REPORT INFORMATION
  Report Type: 
  Country: None (occurrence: None)
  Receive Date: 20060224
  Receipt Date: 20051114
  Transmission Date: 20060701
  Serious: Yes (Hospitalization, Other)
  Sender: FDA-Public Use
  Company Number: US-MERCK-0511USA02686

PATIENT
  Age: 76 Year
  Sex: Female
  Weight: 76 kg

DRUGS (5)
  1. VIOXX [Suspect]
     Indication: ARTHRITIS
     Route: 048
     Dates: start: 20000312, end: 20030101
  2. PREMARIN [Concomitant]
     Route: 065
  3. TYLENOL (CAPLET) [Concomitant]
     Route: 065
  4. RELAFEN [Concomitant]
     Route: 065
  5. CYTOTEC [Concomitant]
     Route: 065

REACTIONS (15)
  - CARDIAC FAILURE CONGESTIVE [None]
  - CEREBROVASCULAR ACCIDENT [None]
  - CHEST PAIN [None]
  - CORONARY ARTERY STENOSIS [None]
  - DEEP VEIN THROMBOSIS [None]
  - MITRAL VALVE INCOMPETENCE [None]
  - MYOCARDIAL INFARCTION [None]
  - PNEUMONIA [None]
  - PULMONARY EMBOLISM [None]
  - PULMONARY HYPERTENSION [None]
  - RENAL FAILURE [None]
  - THROMBOSIS [None]
  - TRICUSPID VALVE INCOMPETENCE [None]
  - VENTRICULAR HYPERTROPHY [None]
  - VENTRICULAR HYPOKINESIA [None]
